FAERS Safety Report 7564658-0 (Version None)
Quarter: 2011Q2

REPORT INFORMATION
  Report Type: 
  Country: None (occurrence: None)
  Receive Date: 20110622
  Receipt Date: 20100818
  Transmission Date: 20111010
  Serious: Yes (Death, Hospitalization)
  Sender: FDA-Public Use
  Company Number: US-MYLANLABS-2010S1014314

PATIENT
  Age: 49 Year
  Sex: Male

DRUGS (14)
  1. HALDOL [Concomitant]
     Route: 030
     Dates: end: 20100701
  2. OXYCODONE HCL [Concomitant]
     Dates: end: 20100701
  3. ASPIRIN [Concomitant]
     Dates: end: 20100701
  4. IBUPROFEN [Concomitant]
     Dates: end: 20100701
  5. TRAMADOL HCL [Concomitant]
     Dates: end: 20100701
  6. TRIHEXYPHENIDY [Concomitant]
     Dates: end: 20100701
  7. DOCUSATE [Concomitant]
     Dates: end: 20100701
  8. ALBUTEROL SULFATE AUTOHALER [Concomitant]
     Dates: end: 20100701
  9. BISACODYL [Concomitant]
     Dates: end: 20100701
  10. OXYBUTYNIN [Concomitant]
     Dates: end: 20100701
  11. CLOZAPINE [Suspect]
     Indication: SCHIZOPHRENIA
     Route: 048
     Dates: end: 20100701
  12. METOPROLOL TARTRATE [Concomitant]
     Dates: end: 20100701
  13. LITHIUM [Concomitant]
     Dates: end: 20100701
  14. TRAZODONE HCL [Concomitant]
     Dates: end: 20100701

REACTIONS (1)
  - COLON OPERATION [None]
